FAERS Safety Report 11743532 (Version 8)
Quarter: 2017Q1

REPORT INFORMATION
  Report Type: Spontaneous
  Country: US (occurrence: US)
  Receive Date: 20151116
  Receipt Date: 20170118
  Transmission Date: 20170428
  Serious: Yes (Congenital Anomaly, Other)
  Sender: FDA-Public Use
  Company Number: PHEH2015US023571

PATIENT
  Age: 1 Day
  Sex: Male

DRUGS (3)
  1. ONDANSETRON. [Suspect]
     Active Substance: ONDANSETRON
     Indication: FOETAL EXPOSURE DURING PREGNANCY
     Dosage: MOTHER DOSE: 8 MG, PRN
     Route: 064
  2. ZOFRAN [Suspect]
     Active Substance: ONDANSETRON HYDROCHLORIDE
     Indication: FOETAL EXPOSURE DURING PREGNANCY
     Route: 064
  3. ONDANSETRON [Suspect]
     Active Substance: ONDANSETRON
     Indication: FOETAL EXPOSURE DURING PREGNANCY
     Route: 064

REACTIONS (22)
  - Fallot^s tetralogy [Unknown]
  - Ventricular septal defect [Unknown]
  - Atrial septal defect [Unknown]
  - Anhedonia [Unknown]
  - Respiratory failure [Unknown]
  - Injury [Unknown]
  - Congenital anomaly [Unknown]
  - Heart disease congenital [Unknown]
  - Neonatal hepatomegaly [Unknown]
  - Pulmonary artery stenosis [Unknown]
  - Cardiac murmur [Unknown]
  - Speech sound disorder [Unknown]
  - Eczema [Unknown]
  - Anxiety [Unknown]
  - Pulmonary valve incompetence [Unknown]
  - Foetal exposure during pregnancy [Unknown]
  - Jaundice neonatal [Unknown]
  - Emotional distress [Unknown]
  - Neonatal tachypnoea [Unknown]
  - Supraventricular extrasystoles [Unknown]
  - Pain [Unknown]
  - Dermatitis atopic [Unknown]

NARRATIVE: CASE EVENT DATE: 20120531
